FAERS Safety Report 8603963-3 (Version None)
Quarter: 2012Q3

REPORT INFORMATION
  Report Type: 
  Country: None (occurrence: None)
  Receive Date: 20120806
  Receipt Date: 20120724
  Transmission Date: 20120928
  Serious: Yes (Other)
  Sender: FDA-Public Use
  Company Number: CIP-2012-00285

PATIENT

DRUGS (3)
  1. CARBOPLATIN [Suspect]
     Indication: NON-SMALL CELL LUNG CANCER
     Dosage: AREA UNDER THE CURVE; 6MG MIN/ML (DAY 1 EACH) 3 WEEK CYCLE), INTRAVENOUS
     Route: 042
  2. PACLITAXEL [Suspect]
     Indication: NON-SMALL CELL LUNG CANCER
     Dosage: 200 MG/M2 (DAY 1 EACH 3 WEEK CYCLE), INTRAVENOUS
     Route: 042
  3. TSU-68 (TSU-68) [Suspect]
     Indication: NON-SMALL CELL LUNG CANCER
     Dosage: 800 MG (400 MG, 2 IN 1 D), ORAL
     Route: 048

REACTIONS (1)
  - HYPERKALAEMIA [None]
